FAERS Safety Report 22535352 (Version 2)
Quarter: 2023Q2

REPORT INFORMATION
  Report Type: Spontaneous
  Country: CN (occurrence: CN)
  Receive Date: 20230608
  Receipt Date: 20230616
  Transmission Date: 20230722
  Serious: Yes (Hospitalization)
  Sender: FDA-Public Use
  Company Number: CN-JNJFOC-20230609293

PATIENT
  Age: 82 Year
  Sex: Male

DRUGS (3)
  1. DARZALEX [Suspect]
     Active Substance: DARATUMUMAB
     Indication: Plasma cell myeloma
     Dosage: 5ML/BOTTLE
     Route: 041
     Dates: start: 20230428, end: 20230429
  2. DARZALEX [Suspect]
     Active Substance: DARATUMUMAB
     Dosage: 20ML/ BOTTLE
     Route: 041
     Dates: start: 20230428, end: 20230429
  3. DEXAMETHASONE ACETATE [Concomitant]
     Active Substance: DEXAMETHASONE ACETATE
     Indication: Plasma cell myeloma
     Route: 048
     Dates: start: 20230428, end: 20230429

REACTIONS (1)
  - Granulocytopenia [Unknown]

NARRATIVE: CASE EVENT DATE: 20230512
